FAERS Safety Report 8296498-1 (Version None)
Quarter: 2012Q2

REPORT INFORMATION
  Report Type: 
  Country: None (occurrence: None)
  Receive Date: 20120418
  Receipt Date: 20120416
  Transmission Date: 20120825
  Serious: No
  Sender: FDA-Public Use
  Company Number: US-PFIZER INC-2012094468

PATIENT
  Sex: Female
  Weight: 49.89 kg

DRUGS (3)
  1. LEVONORGESTREL + ETHINYL ESTRADIOL [Concomitant]
     Indication: CONTRACEPTION
     Dosage: UNK
  2. LYRICA [Suspect]
     Indication: TARSAL TUNNEL SYNDROME
     Dosage: 75 MG, 1X/DAY
     Route: 048
     Dates: start: 20120401
  3. SYNTHROID [Concomitant]
     Dosage: UNK

REACTIONS (1)
  - DRUG INEFFECTIVE [None]
